FAERS Safety Report 16937775 (Version 4)
Quarter: 2020Q1

REPORT INFORMATION
  Report Type: Spontaneous
  Country: US (occurrence: US)
  Receive Date: 20191018
  Receipt Date: 20200310
  Transmission Date: 20200409
  Serious: No
  Sender: FDA-Public Use
  Company Number: US-ACTELION-A-NJ2019-197147

PATIENT
  Sex: Female
  Weight: 92.97 kg

DRUGS (6)
  1. WELLBUTRIN [Suspect]
     Active Substance: BUPROPION HYDROCHLORIDE
     Indication: PRODUCT USED FOR UNKNOWN INDICATION
     Route: 065
  2. DESVENLAFAXINE. [Suspect]
     Active Substance: DESVENLAFAXINE
     Indication: PRODUCT USED FOR UNKNOWN INDICATION
     Route: 065
  3. POTASSIUM [Concomitant]
     Active Substance: POTASSIUM
     Dosage: 10 MEQ, QD
  4. TYLENOL [Concomitant]
     Active Substance: ACETAMINOPHEN
  5. OPSUMIT [Suspect]
     Active Substance: MACITENTAN
     Indication: PULMONARY ARTERIAL HYPERTENSION
     Dosage: 10 MG, QD
     Route: 048
  6. DILTIAZEM. [Concomitant]
     Active Substance: DILTIAZEM

REACTIONS (11)
  - Skin discolouration [Unknown]
  - Fluid retention [Unknown]
  - Dry eye [Unknown]
  - Heart rate increased [Unknown]
  - Nausea [Unknown]
  - Arthropathy [Unknown]
  - Condition aggravated [Unknown]
  - Cough [Unknown]
  - Oedema peripheral [Unknown]
  - Dizziness [Unknown]
  - Sinus disorder [Unknown]
